FAERS Safety Report 13061156 (Version 2)
Quarter: 2017Q1

REPORT INFORMATION
  Report Type: Report from Study
  Country: KR (occurrence: KR)
  Receive Date: 20161226
  Receipt Date: 20170106
  Transmission Date: 20170428
  Serious: Yes (Hospitalization, Other)
  Sender: FDA-Public Use
  Company Number: KR-BRISTOL-MYERS SQUIBB COMPANY-BMS-2016-102914

PATIENT
  Age: 68 Year
  Sex: Female

DRUGS (2)
  1. DACLATASVIR DIHYDROCHLORIDE [Suspect]
     Active Substance: DACLATASVIR DIHYDROCHLORIDE
     Indication: HEPATITIS C
     Dosage: UNK
     Route: 065
     Dates: start: 20160229
  2. ASUNAPREVIR [Suspect]
     Active Substance: ASUNAPREVIR
     Indication: HEPATITIS C
     Dosage: UNK
     Route: 065
     Dates: start: 20160229

REACTIONS (3)
  - Abscess drainage [Unknown]
  - Asthenia [Recovering/Resolving]
  - Liver abscess [Recovered/Resolved]

NARRATIVE: CASE EVENT DATE: 20161121
